FAERS Safety Report 11211345 (Version 1)
Quarter: 2015Q2

REPORT INFORMATION
  Report Type: Spontaneous
  Country: US (occurrence: None)
  Receive Date: 20150619
  Receipt Date: 20150619
  Transmission Date: 20150821
  Serious: No
  Sender: FDA-Public Use
  Company Number: None

PATIENT
  Age: 62 Year
  Sex: Female
  Weight: 70.31 kg

DRUGS (2)
  1. BUSPIRONE [Suspect]
     Active Substance: BUSPIRONE HYDROCHLORIDE
     Indication: ANXIETY
     Dosage: 1 TAKEN BY MOUTH
     Dates: start: 20150529, end: 20150618
  2. BUSPIRONE [Suspect]
     Active Substance: BUSPIRONE HYDROCHLORIDE
     Indication: DEPRESSION
     Dosage: 1 TAKEN BY MOUTH
     Dates: start: 20150529, end: 20150618

REACTIONS (2)
  - Lip disorder [None]
  - Muscle twitching [None]

NARRATIVE: CASE EVENT DATE: 20150604
